FAERS Safety Report 20601777 (Version 2)
Quarter: 2022Q1

REPORT INFORMATION
  Report Type: Spontaneous
  Country: FR (occurrence: FR)
  Receive Date: 20220316
  Receipt Date: 20220331
  Transmission Date: 20220423
  Serious: Yes (Other)
  Sender: FDA-Public Use
  Company Number: None

PATIENT
  Age: 84 Year
  Sex: Female

DRUGS (18)
  1. FUROSEMIDE [Suspect]
     Active Substance: FUROSEMIDE
     Indication: Cardiac failure
     Dosage: 80 MILLIGRAM, QD
     Route: 048
     Dates: start: 20210409, end: 20210428
  2. FUROSEMIDE [Suspect]
     Active Substance: FUROSEMIDE
     Dosage: 80 MILLIGRAM, QD (40 MG MORNING AND EVENING)
     Route: 048
     Dates: start: 20210409, end: 20210429
  3. HEPARIN CALCIUM [Suspect]
     Active Substance: HEPARIN CALCIUM
     Indication: Embolism
     Dosage: 7500 INTERNATIONAL UNIT, QD
     Route: 058
     Dates: start: 20210414, end: 20210430
  4. HEPARIN CALCIUM [Suspect]
     Active Substance: HEPARIN CALCIUM
     Dosage: 22500 INTERNATIONAL UNIT, QD (22500 IU, QD; 7500 IU, TID)
     Route: 058
     Dates: start: 20210414, end: 20210430
  5. PREDNISONE [Suspect]
     Active Substance: PREDNISONE
     Indication: Giant cell arteritis
     Dosage: 4 MILLIGRAM, QD (IN THE MORNING)
     Route: 048
     Dates: start: 20210407, end: 20210503
  6. INSULIN GLARGINE [Concomitant]
     Active Substance: INSULIN GLARGINE
     Dosage: 8 INTERNATIONAL UNIT, QD (8 UNITS IN THE EVENING)
     Route: 058
     Dates: start: 20210407
  7. ACETAMINOPHEN [Concomitant]
     Active Substance: ACETAMINOPHEN
     Dosage: 1 DOSAGE FORM, PRN
     Route: 048
     Dates: end: 20210423
  8. NOVORAPID [Concomitant]
     Active Substance: INSULIN ASPART
     Dosage: 20 INTERNATIONAL UNIT, QD (6 UNITS MORNING AND NOON, AND 8 UNITS IN THE EVENING)
     Route: 058
     Dates: start: 20210322
  9. LANSOPRAZOLE [Concomitant]
     Active Substance: LANSOPRAZOLE
     Dosage: 15 MILLIGRAM, QD
     Route: 048
     Dates: start: 20210322, end: 20210423
  10. BISOPROLOL [Concomitant]
     Active Substance: BISOPROLOL
     Dosage: 5 MILLIGRAM, QD (1. 25 MG MORNING AND EVENING (USUAL TREATMENT))
     Route: 048
  11. PANTOPRAZOLE [Concomitant]
     Active Substance: PANTOPRAZOLE
     Dosage: UNK
     Route: 065
  12. DOLIPRANE [Concomitant]
     Active Substance: ACETAMINOPHEN
     Dosage: 500 MILLIGRAM, PRN
     Route: 048
     Dates: start: 20210423
  13. ACLASTA [Concomitant]
     Active Substance: ZOLEDRONIC ACID
     Indication: Osteoporosis
     Dosage: UNK
  14. COMIRNATY [Concomitant]
     Active Substance: TOZINAMERAN
     Indication: COVID-19 immunisation
     Dosage: UNK
     Route: 065
     Dates: start: 20210223
  15. COMIRNATY [Concomitant]
     Active Substance: TOZINAMERAN
     Dosage: UNK
     Route: 065
     Dates: start: 20210323
  16. CHOLECALCIFEROL [Concomitant]
     Active Substance: CHOLECALCIFEROL
     Dosage: UNK (100000 IU, MONTHLY (STARTED IN SRH)
     Route: 065
  17. KAYEXALATE [Concomitant]
     Active Substance: SODIUM POLYSTYRENE SULFONATE
     Dosage: UNK, QD DAILY (ONE MEASURING SPOON MORNING AND EVENING)
     Route: 065
     Dates: start: 20210418
  18. ECONAZOLE [Concomitant]
     Active Substance: ECONAZOLE
     Dosage: UNK, PRN
     Route: 065

REACTIONS (3)
  - Hepatic cytolysis [Recovered/Resolved]
  - Blood alkaline phosphatase increased [Recovered/Resolved]
  - Cholestasis [Recovered/Resolved]

NARRATIVE: CASE EVENT DATE: 20210421
